FAERS Safety Report 9687589 (Version 3)
Quarter: 2013Q4

REPORT INFORMATION
  Report Type: Spontaneous
  Country: US (occurrence: US)
  Receive Date: 20131114
  Receipt Date: 20131213
  Transmission Date: 20140711
  Serious: Yes (Hospitalization, Other)
  Sender: FDA-Public Use
  Company Number: US-ROCHE-1301194

PATIENT
  Age: 54 Year
  Sex: Female
  Weight: 72.64 kg

DRUGS (6)
  1. PEGASYS [Suspect]
     Indication: HEPATITIS C
     Route: 058
     Dates: start: 201211, end: 201212
  2. RIBAVIRIN [Suspect]
     Indication: HEPATITIS C
     Route: 065
     Dates: start: 201211, end: 201212
  3. RO 5190591 (HCV PROTEASE INHIBITOR) [Suspect]
     Indication: LIVER DISORDER
     Route: 065
  4. DENAVIR [Suspect]
     Indication: HEPATITIS C
     Route: 065
     Dates: start: 201211, end: 201212
  5. RITONAVIR [Suspect]
     Indication: LIVER DISORDER
     Route: 065
  6. INTERFERON ALFA-2A [Concomitant]
     Indication: LIVER DISORDER
     Route: 065

REACTIONS (12)
  - Epistaxis [Recovered/Resolved]
  - Mouth haemorrhage [Recovered/Resolved]
  - Loss of consciousness [Recovered/Resolved]
  - Sciatica [Not Recovered/Not Resolved]
  - Full blood count decreased [Unknown]
  - Nerve injury [Not Recovered/Not Resolved]
  - Alopecia [Unknown]
  - Fatigue [Not Recovered/Not Resolved]
  - Decreased appetite [Unknown]
  - Asthenia [Unknown]
  - Abdominal pain upper [Unknown]
  - Weight decreased [Unknown]
